FAERS Safety Report 14160488 (Version 2)
Quarter: 2017Q4

REPORT INFORMATION
  Report Type: Spontaneous
  Country: DE (occurrence: DE)
  Receive Date: 20171104
  Receipt Date: 20171230
  Transmission Date: 20180321
  Serious: Yes (Life-Threatening, Hospitalization, Other)
  Sender: FDA-Public Use
  Company Number: DE-AUROBINDO-AUR-APL-2017-42873

PATIENT
  Age: 66 Year
  Sex: Male
  Weight: 70 kg

DRUGS (18)
  1. MELPERON [Interacting]
     Active Substance: MELPERONE
     Dosage: DOSAGE FORM: UNSPECIFIED () ; AS NECESSARY
     Route: 065
  2. AZACITIDINA [Concomitant]
     Active Substance: AZACITIDINE
     Indication: MYELODYSPLASTIC SYNDROME
     Dosage: UNK
     Route: 042
     Dates: end: 20170829
  3. TORASEMIDE [Concomitant]
     Active Substance: TORSEMIDE
     Indication: PRODUCT USED FOR UNKNOWN INDICATION
     Route: 065
  4. MELPERON [Interacting]
     Active Substance: MELPERONE
     Dosage: DOSAGE FORM: UNSPECIFIED
     Route: 065
  5. LEVETIRACETAM. [Concomitant]
     Active Substance: LEVETIRACETAM
     Indication: EPILEPSY
     Dosage: 500 MG, TWO TIMES A DAY
     Route: 048
  6. L-THYROXIN [Concomitant]
     Active Substance: LEVOTHYROXINE SODIUM
     Dosage: DOSAGE FORM: UNSPECIFIED
     Route: 048
  7. RISPERIDONE 1MG [Suspect]
     Active Substance: RISPERIDONE
     Indication: ABNORMAL BEHAVIOUR
     Dosage: 1 MG, DAILY
     Route: 048
     Dates: start: 201708
  8. LAMOTRIGINE 100MG [Suspect]
     Active Substance: LAMOTRIGINE
     Indication: EPILEPSY
     Dosage: 100 MG, TWO TIMES A DAY
     Route: 048
  9. LEVETIRACETAM. [Concomitant]
     Active Substance: LEVETIRACETAM
     Dosage: DOSAGE FORM: UNSPECIFIED
     Route: 048
     Dates: end: 2017
  10. L-THYROXIN [Concomitant]
     Active Substance: LEVOTHYROXINE SODIUM
     Indication: PRODUCT USED FOR UNKNOWN INDICATION
     Route: 065
  11. FILGRASTIM [Concomitant]
     Active Substance: FILGRASTIM
     Dosage: DOSAGE FORM: UNSPECIFIED ()
     Route: 065
  12. TORASEMID [Concomitant]
     Active Substance: TORSEMIDE
     Dosage: DOSAGE FORM: UNSPECIFIED
     Route: 048
  13. AZACITIDINE. [Concomitant]
     Active Substance: AZACITIDINE
     Indication: MYELODYSPLASTIC SYNDROME
     Dosage: DOSAGE FORM: UNSPECIFIED ()
     Route: 042
     Dates: end: 20170829
  14. VALPROATE [Concomitant]
     Active Substance: VALPROIC ACID
     Indication: EPILEPSY
     Dosage: 500 MG, TWO TIMES A DAY
     Route: 048
  15. PANTOPRAZOLE [Concomitant]
     Active Substance: PANTOPRAZOLE
     Indication: EPILEPSY
  16. TAMSULOSIN [Concomitant]
     Active Substance: TAMSULOSIN
     Indication: PRODUCT USED FOR UNKNOWN INDICATION
     Route: 065
  17. MELPERON [Interacting]
     Active Substance: MELPERONE
     Indication: PRODUCT USED FOR UNKNOWN INDICATION
     Dosage: UNK
     Route: 065
  18. TAMSULOSIN [Concomitant]
     Active Substance: TAMSULOSIN
     Dosage: DOSAGE FORM: UNSPECIFIED
     Route: 048

REACTIONS (6)
  - Drug interaction [Recovering/Resolving]
  - Coma [Recovered/Resolved]
  - Seizure [Recovering/Resolving]
  - Endotracheal intubation [Recovering/Resolving]
  - Epilepsy [Recovering/Resolving]
  - Blood glucose increased [Unknown]

NARRATIVE: CASE EVENT DATE: 20170913
